FAERS Safety Report 5030579-0 (Version None)
Quarter: 2006Q2

REPORT INFORMATION
  Report Type: 
  Country: None (occurrence: None)
  Receive Date: 20060615
  Receipt Date: 20060605
  Transmission Date: 20061013
  Serious: Yes (Other)
  Sender: FDA-Public Use
  Company Number: 29337

PATIENT
  Age: 72 Year
  Sex: Male

DRUGS (1)
  1. ALDARA [Suspect]
     Indication: BASAL CELL CARCINOMA
     Dosage: 1 SACHET 5 IN 1 WEEKS TOPICAL
     Route: 061
     Dates: start: 20060523

REACTIONS (2)
  - FATIGUE [None]
  - VISION BLURRED [None]
